FAERS Safety Report 14518513 (Version 1)
Quarter: 2018Q1

REPORT INFORMATION
  Report Type: Spontaneous
  Country: US (occurrence: US)
  Receive Date: 20180212
  Receipt Date: 20180212
  Transmission Date: 20180509
  Serious: No
  Sender: FDA-Public Use
  Company Number: US-PFIZER INC-2018060216

PATIENT
  Age: 17 Year
  Sex: Male

DRUGS (1)
  1. HYDROCORTISONE. [Suspect]
     Active Substance: HYDROCORTISONE
     Dosage: 10MG IN THE MORNING AND 5 MG IN THE EVENING, 7.87 MG/M2/DAY

REACTIONS (2)
  - Vomiting [Unknown]
  - Drug dose omission [Unknown]
